FAERS Safety Report 7258877-0 (Version None)
Quarter: 2011Q1

REPORT INFORMATION
  Report Type: 
  Country: None (occurrence: None)
  Receive Date: 20110129
  Receipt Date: 20100614
  Transmission Date: 20110831
  Serious: No
  Sender: FDA-Public Use
  Company Number: US-ABBOTT-10P-163-0651058-00

PATIENT
  Age: 54 Year
  Sex: Male

DRUGS (10)
  1. PREVACID [Concomitant]
     Indication: HYPERCHLORHYDRIA
     Dosage: 24 HOUR
  2. MESALAMINE [Concomitant]
     Indication: PRODUCT USED FOR UNKNOWN INDICATION
  3. OXYCODONE [Concomitant]
     Indication: PRODUCT USED FOR UNKNOWN INDICATION
     Dosage: 10/325MG USUALLY DAILY AS NEEDED
     Route: 048
  4. TOPAMAX [Concomitant]
     Indication: PRODUCT USED FOR UNKNOWN INDICATION
     Route: 048
  5. KADIAN [Concomitant]
     Indication: BACK PAIN
     Route: 048
  6. MULTI-VITAMIN [Concomitant]
     Indication: PRODUCT USED FOR UNKNOWN INDICATION
     Dosage: IN THE EVENING
  7. COLAZAL [Concomitant]
     Indication: COLITIS ULCERATIVE
     Dosage: 3-THREE TIMES A DAY
     Route: 048
  8. FUROSEMIDE [Concomitant]
     Indication: PRODUCT USED FOR UNKNOWN INDICATION
     Dosage: TWO EVERY MORNING
  9. HUMIRA [Suspect]
     Indication: COLITIS ULCERATIVE
     Dates: start: 20071101
  10. CYMBALTA [Concomitant]
     Indication: PRODUCT USED FOR UNKNOWN INDICATION
     Dosage: AT NIGHT
     Route: 048

REACTIONS (3)
  - PRURITUS [None]
  - RASH MACULAR [None]
  - CONTUSION [None]
